FAERS Safety Report 16285754 (Version 1)
Quarter: 2019Q2

REPORT INFORMATION
  Report Type: Spontaneous
  Country: US (occurrence: US)
  Receive Date: 20190508
  Receipt Date: 20190508
  Transmission Date: 20190711
  Serious: Yes (Other)
  Sender: FDA-Public Use
  Company Number: US-DRREDDYS-USA/USA/19/0110065

PATIENT
  Age: 8 Year

DRUGS (7)
  1. MERCAPTOPURINE. [Suspect]
     Active Substance: MERCAPTOPURINE
     Indication: ACUTE LYMPHOCYTIC LEUKAEMIA
  2. VINCRISTINE [Suspect]
     Active Substance: VINCRISTINE
     Dosage: WAS RESTARTED AT 25 PERCENT OF THE FULL DOSE AND TITRATED TO 100 PERCENT OVER THE NEXT 6 MONTHS
  3. DEXAMETHASONE. [Suspect]
     Active Substance: DEXAMETHASONE
     Dosage: WAS CONTINUED AT FULL-DOSE THROUGHOUT THE REMAINDER OF THERAPY
  4. METHOTREXATE. [Suspect]
     Active Substance: METHOTREXATE
     Indication: ACUTE LYMPHOCYTIC LEUKAEMIA
  5. METHOTREXATE. [Suspect]
     Active Substance: METHOTREXATE
     Dosage: WAS RESTARTED AT 25 PERCENT OF THE FULL DOSE AND TITRATED TO 100 PERCENT OVER THE NEXT 6 MONTHS
  6. DEXAMETHASONE. [Suspect]
     Active Substance: DEXAMETHASONE
     Indication: ACUTE LYMPHOCYTIC LEUKAEMIA
  7. VINCRISTINE [Suspect]
     Active Substance: VINCRISTINE
     Indication: ACUTE LYMPHOCYTIC LEUKAEMIA

REACTIONS (2)
  - Haemolytic anaemia [Recovered/Resolved]
  - Vanishing bile duct syndrome [Recovered/Resolved]
